FAERS Safety Report 18380463 (Version 1)
Quarter: 2020Q4

REPORT INFORMATION
  Report Type: Spontaneous
  Country: US (occurrence: US)
  Receive Date: 20201014
  Receipt Date: 20201014
  Transmission Date: 20210114
  Serious: No
  Sender: FDA-Public Use
  Company Number: US-ACCORD-195795

PATIENT

DRUGS (1)
  1. DAPTOMYCIN ACCORD [Suspect]
     Active Substance: DAPTOMYCIN
     Indication: PRODUCT USED FOR UNKNOWN INDICATION
     Dosage: Y17697 (STRENGTH: 500 MG)

REACTIONS (3)
  - Tremor [Unknown]
  - Periorbital swelling [Unknown]
  - Chills [Unknown]

NARRATIVE: CASE EVENT DATE: 20200516
